FAERS Safety Report 9753105 (Version 1)
Quarter: 2013Q4

REPORT INFORMATION
  Report Type: Spontaneous
  Country: US (occurrence: US)
  Receive Date: 20131213
  Receipt Date: 20131213
  Transmission Date: 20140711
  Serious: No
  Sender: FDA-Public Use
  Company Number: US-GILEAD-2010-0026333

PATIENT
  Age: 53 Year
  Sex: Female

DRUGS (7)
  1. LETAIRIS [Suspect]
     Indication: PULMONARY ARTERIAL HYPERTENSION
     Route: 048
     Dates: start: 20091014, end: 20091127
  2. FUROSEMIDE [Concomitant]
  3. VALIUM [Concomitant]
  4. AMBIEN [Concomitant]
  5. CYMBALTA [Concomitant]
  6. CRESTOR [Concomitant]
  7. NEXIUM [Concomitant]

REACTIONS (1)
  - Oedema peripheral [Recovered/Resolved]
